FAERS Safety Report 18041770 (Version 2)
Quarter: 2020Q4

REPORT INFORMATION
  Report Type: Spontaneous
  Country: US (occurrence: US)
  Receive Date: 20200720
  Receipt Date: 20201213
  Transmission Date: 20210113
  Serious: Yes (Hospitalization, Other)
  Sender: FDA-Public Use
  Company Number: US-TEVA-2020-US-1802771

PATIENT
  Age: 46 Year
  Sex: Male
  Weight: 210.2 kg

DRUGS (13)
  1. AMLODIPINE/VALSARTAN ALEMBIC [Suspect]
     Active Substance: AMLODIPINE\VALSARTAN
     Indication: HYPERTENSION
     Dosage: DOSAGE: 320MG
     Route: 065
     Dates: start: 20180108, end: 20180706
  2. TRIAMTERENE/HYDROCHLOROTHIAZID [Concomitant]
     Indication: HYPERTENSION
  3. AMLODIPINE/VALSARTAN TEVA [Suspect]
     Active Substance: AMLODIPINE\VALSARTAN
     Indication: HYPERTENSION
     Dosage: DOSAGE:320MG
     Route: 065
     Dates: start: 20150921, end: 20150925
  4. AMLODIPINE/VALSARTAN TEVA [Suspect]
     Active Substance: AMLODIPINE\VALSARTAN
     Dates: start: 20150617, end: 20150915
  5. AMLODIPINE [Concomitant]
     Active Substance: AMLODIPINE BESYLATE
     Indication: HYPERTENSION
  6. AMLODIPINE/VALSARTAN TEVA [Suspect]
     Active Substance: AMLODIPINE\VALSARTAN
     Dates: start: 20180108, end: 20180706
  7. AMLODIPINE/VALSARTAN PAR [Suspect]
     Active Substance: AMLODIPINE\VALSARTAN
     Indication: HYPERTENSION
     Dosage: DOSAGE: 320MG
     Route: 065
     Dates: start: 20150617, end: 20150915
  8. ASPIRIN. [Concomitant]
     Active Substance: ASPIRIN
     Indication: ANALGESIC THERAPY
     Dosage: 162 MILLIGRAM DAILY; DOSAGE: 81MG, TWICE DAILY
     Route: 048
     Dates: start: 20100210, end: 20200820
  9. FORXIGA [Concomitant]
     Active Substance: DAPAGLIFLOZIN
     Indication: DIABETES MELLITUS
     Dosage: 10 MILLIGRAM DAILY; DOSAGE: 10MG; ONCE DAILY
     Route: 048
     Dates: start: 20150211, end: 20200820
  10. CLONIDINE. [Concomitant]
     Active Substance: CLONIDINE
     Indication: HYPERTENSION
     Dosage: 1 MILLIGRAM DAILY; DOSAGE: 01MG; ONCE DAILY
     Dates: start: 20120903, end: 20200820
  11. METOPROLOL. [Concomitant]
     Active Substance: METOPROLOL
     Indication: HYPERTENSION
  12. LIPITOR [Concomitant]
     Active Substance: ATORVASTATIN CALCIUM
     Indication: BLOOD CHOLESTEROL INCREASED
     Dosage: 20 MILLIGRAM DAILY; DOSAGE: 20MG; ONCE DAILY
     Route: 048
     Dates: start: 20111213, end: 20200820
  13. METFORMIN [Concomitant]
     Active Substance: METFORMIN HYDROCHLORIDE
     Indication: DIABETES MELLITUS
     Dosage: 500 MILLIGRAM DAILY; DOSAGE: 500MG; ONCE DAILY
     Route: 048
     Dates: start: 20120521, end: 20200820

REACTIONS (2)
  - Hepatic cancer [Unknown]
  - Colon cancer [Unknown]
